FAERS Safety Report 17930403 (Version 2)
Quarter: 2020Q3

REPORT INFORMATION
  Report Type: Spontaneous
  Country: BE (occurrence: BE)
  Receive Date: 20200623
  Receipt Date: 20200707
  Transmission Date: 20201103
  Serious: Yes (Death)
  Sender: FDA-Public Use
  Company Number: BE-ROCHE-2626440

PATIENT
  Age: 81 Year
  Sex: Female
  Weight: 72 kg

DRUGS (1)
  1. ROACTEMRA [Suspect]
     Active Substance: TOCILIZUMAB
     Indication: COVID-19
     Route: 042
     Dates: start: 20200401, end: 20200401

REACTIONS (4)
  - Colectomy [Fatal]
  - Asthenia [Fatal]
  - Melaena [Fatal]
  - Colitis ischaemic [Fatal]

NARRATIVE: CASE EVENT DATE: 20200417
